FAERS Safety Report 6948421-7 (Version None)
Quarter: 2010Q3

REPORT INFORMATION
  Report Type: 
  Country: None (occurrence: None)
  Receive Date: 20100828
  Receipt Date: 20091029
  Transmission Date: 20110219
  Serious: No
  Sender: FDA-Public Use
  Company Number: US-ABBOTT-09P-163-0606406-00

PATIENT
  Sex: Female
  Weight: 77.18 kg

DRUGS (2)
  1. NIASPAN [Suspect]
     Indication: BLOOD CHOLESTEROL INCREASED
     Dates: start: 20080501
  2. SIMCOR [Concomitant]
     Indication: BLOOD CHOLESTEROL INCREASED
     Dates: start: 20080501

REACTIONS (4)
  - GENERALISED ERYTHEMA [None]
  - PALPITATIONS [None]
  - PARAESTHESIA [None]
  - RASH MACULAR [None]
